FAERS Safety Report 8328913-9 (Version None)
Quarter: 2012Q2

REPORT INFORMATION
  Report Type: 
  Country: None (occurrence: None)
  Receive Date: 20120502
  Receipt Date: 20100922
  Transmission Date: 20120825
  Serious: No
  Sender: FDA-Public Use
  Company Number: US-TEVA-2010005057

PATIENT
  Sex: Male
  Weight: 8.4 kg

DRUGS (4)
  1. FLUCONAZOLE [Concomitant]
     Dates: start: 20100701
  2. NUVIGIL [Suspect]
     Dosage: 225 MILLIGRAM;
     Route: 048
     Dates: start: 20100818, end: 20100824
  3. NUVIGIL [Suspect]
     Dosage: 300 MILLIGRAM;
     Route: 048
     Dates: start: 20100825, end: 20100825
  4. NUVIGIL [Suspect]
     Indication: SLEEP APNOEA SYNDROME
     Dosage: 150 MILLIGRAM;
     Route: 048
     Dates: start: 20100811, end: 20100817

REACTIONS (2)
  - INSOMNIA [None]
  - DRUG INEFFECTIVE [None]
